FAERS Safety Report 25125392 (Version 1)
Quarter: 2025Q1

REPORT INFORMATION
  Report Type: Report from Study
  Country: IT (occurrence: IT)
  Receive Date: 20250326
  Receipt Date: 20250326
  Transmission Date: 20250408
  Serious: Yes (Other)
  Sender: MYLAN
  Company Number: None

PATIENT
  Age: 87 Year
  Sex: Female

DRUGS (52)
  1. NORVASC [Suspect]
     Active Substance: AMLODIPINE BESYLATE
     Indication: Product used for unknown indication
     Dosage: 5 MILLIGRAM, BID (5 MG X 2 PER DAY)
  2. NORVASC [Suspect]
     Active Substance: AMLODIPINE BESYLATE
     Dosage: 5 MILLIGRAM, BID (5 MG X 2 PER DAY)
     Route: 065
  3. NORVASC [Suspect]
     Active Substance: AMLODIPINE BESYLATE
     Dosage: 5 MILLIGRAM, BID (5 MG X 2 PER DAY)
     Route: 065
  4. NORVASC [Suspect]
     Active Substance: AMLODIPINE BESYLATE
     Dosage: 5 MILLIGRAM, BID (5 MG X 2 PER DAY)
  5. LASIX [Suspect]
     Active Substance: FUROSEMIDE
     Indication: Product used for unknown indication
     Dosage: 25 MILLIGRAM, BID (25 MG X 2 PER DAY) (DOSAGE REDUCED TO 1 TABLET EVERY OTHER DAY)
  6. LASIX [Suspect]
     Active Substance: FUROSEMIDE
     Dosage: 25 MILLIGRAM, BID (25 MG X 2 PER DAY) (DOSAGE REDUCED TO 1 TABLET EVERY OTHER DAY)
     Route: 065
  7. LASIX [Suspect]
     Active Substance: FUROSEMIDE
     Dosage: 25 MILLIGRAM, BID (25 MG X 2 PER DAY) (DOSAGE REDUCED TO 1 TABLET EVERY OTHER DAY)
     Route: 065
  8. LASIX [Suspect]
     Active Substance: FUROSEMIDE
     Dosage: 25 MILLIGRAM, BID (25 MG X 2 PER DAY) (DOSAGE REDUCED TO 1 TABLET EVERY OTHER DAY)
  9. VALSARTAN [Suspect]
     Active Substance: VALSARTAN
     Indication: Product used for unknown indication
  10. VALSARTAN [Suspect]
     Active Substance: VALSARTAN
     Route: 065
  11. VALSARTAN [Suspect]
     Active Substance: VALSARTAN
     Route: 065
  12. VALSARTAN [Suspect]
     Active Substance: VALSARTAN
  13. BUDESONIDE\FORMOTEROL\GLYCOPYRRONIUM [Concomitant]
     Active Substance: BUDESONIDE\FORMOTEROL\GLYCOPYRRONIUM
  14. BUDESONIDE\FORMOTEROL\GLYCOPYRRONIUM [Concomitant]
     Active Substance: BUDESONIDE\FORMOTEROL\GLYCOPYRRONIUM
     Route: 065
  15. BUDESONIDE\FORMOTEROL\GLYCOPYRRONIUM [Concomitant]
     Active Substance: BUDESONIDE\FORMOTEROL\GLYCOPYRRONIUM
     Route: 065
  16. BUDESONIDE\FORMOTEROL\GLYCOPYRRONIUM [Concomitant]
     Active Substance: BUDESONIDE\FORMOTEROL\GLYCOPYRRONIUM
  17. PREDNISONE [Concomitant]
     Active Substance: PREDNISONE
  18. PREDNISONE [Concomitant]
     Active Substance: PREDNISONE
     Route: 065
  19. PREDNISONE [Concomitant]
     Active Substance: PREDNISONE
     Route: 065
  20. PREDNISONE [Concomitant]
     Active Substance: PREDNISONE
  21. AZITHROMYCIN DIHYDRATE [Concomitant]
     Active Substance: AZITHROMYCIN DIHYDRATE
  22. AZITHROMYCIN DIHYDRATE [Concomitant]
     Active Substance: AZITHROMYCIN DIHYDRATE
     Route: 065
  23. AZITHROMYCIN DIHYDRATE [Concomitant]
     Active Substance: AZITHROMYCIN DIHYDRATE
     Route: 065
  24. AZITHROMYCIN DIHYDRATE [Concomitant]
     Active Substance: AZITHROMYCIN DIHYDRATE
  25. PANTOPRAZOLE SODIUM [Concomitant]
     Active Substance: PANTOPRAZOLE SODIUM
  26. PANTOPRAZOLE SODIUM [Concomitant]
     Active Substance: PANTOPRAZOLE SODIUM
     Route: 065
  27. PANTOPRAZOLE SODIUM [Concomitant]
     Active Substance: PANTOPRAZOLE SODIUM
     Route: 065
  28. PANTOPRAZOLE SODIUM [Concomitant]
     Active Substance: PANTOPRAZOLE SODIUM
  29. Folina [Concomitant]
  30. Folina [Concomitant]
     Route: 065
  31. Folina [Concomitant]
     Route: 065
  32. Folina [Concomitant]
  33. ELIQUIS [Concomitant]
     Active Substance: APIXABAN
  34. ELIQUIS [Concomitant]
     Active Substance: APIXABAN
     Route: 065
  35. ELIQUIS [Concomitant]
     Active Substance: APIXABAN
     Route: 065
  36. ELIQUIS [Concomitant]
     Active Substance: APIXABAN
  37. JARDIANCE [Concomitant]
     Active Substance: EMPAGLIFLOZIN
  38. JARDIANCE [Concomitant]
     Active Substance: EMPAGLIFLOZIN
     Route: 065
  39. JARDIANCE [Concomitant]
     Active Substance: EMPAGLIFLOZIN
     Route: 065
  40. JARDIANCE [Concomitant]
     Active Substance: EMPAGLIFLOZIN
  41. Luvion [Concomitant]
  42. Luvion [Concomitant]
     Route: 065
  43. Luvion [Concomitant]
     Route: 065
  44. Luvion [Concomitant]
  45. TRAZODONE HYDROCHLORIDE [Concomitant]
     Active Substance: TRAZODONE HYDROCHLORIDE
  46. TRAZODONE HYDROCHLORIDE [Concomitant]
     Active Substance: TRAZODONE HYDROCHLORIDE
     Route: 065
  47. TRAZODONE HYDROCHLORIDE [Concomitant]
     Active Substance: TRAZODONE HYDROCHLORIDE
     Route: 065
  48. TRAZODONE HYDROCHLORIDE [Concomitant]
     Active Substance: TRAZODONE HYDROCHLORIDE
  49. METHOTREXATE [Concomitant]
     Active Substance: METHOTREXATE
  50. METHOTREXATE [Concomitant]
     Active Substance: METHOTREXATE
     Route: 065
  51. METHOTREXATE [Concomitant]
     Active Substance: METHOTREXATE
     Route: 065
  52. METHOTREXATE [Concomitant]
     Active Substance: METHOTREXATE

REACTIONS (1)
  - Chronic kidney disease [Unknown]

NARRATIVE: CASE EVENT DATE: 20250310
